FAERS Safety Report 25830716 (Version 1)
Quarter: 2025Q3

REPORT INFORMATION
  Report Type: Spontaneous
  Country: JP (occurrence: JP)
  Receive Date: 20250922
  Receipt Date: 20250922
  Transmission Date: 20251021
  Serious: Yes (Other)
  Sender: MYLAN
  Company Number: JP-MYLANLABS-2025M1078875

PATIENT

DRUGS (1)
  1. PREGABALIN [Suspect]
     Active Substance: PREGABALIN
     Indication: Product used for unknown indication
     Dosage: 25 MILLIGRAM, BID
     Dates: start: 2025, end: 2025

REACTIONS (2)
  - Suicidal ideation [Unknown]
  - Depressed mood [Unknown]

NARRATIVE: CASE EVENT DATE: 20250101
